FAERS Safety Report 7083136-9 (Version None)
Quarter: 2010Q4

REPORT INFORMATION
  Report Type: 
  Country: None (occurrence: None)
  Receive Date: 20101104
  Receipt Date: 20101026
  Transmission Date: 20110411
  Serious: Yes (Other)
  Sender: FDA-Public Use
  Company Number: US-ABBOTT-10P-163-0681484-00

PATIENT
  Sex: Female

DRUGS (4)
  1. MERIDIA [Suspect]
     Indication: WEIGHT DECREASED
     Dosage: PATIENT OFF/ON MERIDIA MULTI X'S
     Dates: start: 20020101, end: 20101026
  2. SYNTHROID [Concomitant]
     Indication: PRODUCT USED FOR UNKNOWN INDICATION
  3. NEURONTIN [Concomitant]
     Indication: PRODUCT USED FOR UNKNOWN INDICATION
  4. PLAVIX [Concomitant]
     Indication: PRODUCT USED FOR UNKNOWN INDICATION
     Dates: start: 20090101

REACTIONS (5)
  - ARTHRALGIA [None]
  - BACK PAIN [None]
  - BLOOD PRESSURE INCREASED [None]
  - SLUGGISHNESS [None]
  - VENOUS OCCLUSION [None]
